FAERS Safety Report 9015330 (Version 1)
Quarter: 2013Q1

REPORT INFORMATION
  Report Type: Spontaneous
  Country: US (occurrence: None)
  Receive Date: 20130109
  Receipt Date: 20130109
  Transmission Date: 20140127
  Serious: Yes (Other)
  Sender: FDA-Public Use
  Company Number: None

PATIENT
  Age: 72 Year
  Sex: Female
  Weight: 72.58 kg

DRUGS (1)
  1. ALENDRONATE SODIUM [Suspect]
     Indication: OSTEOPOROSIS PROPHYLAXIS
     Dosage: 1 TABLET, 70 MG WEEKLY
     Dates: start: 20121204

REACTIONS (5)
  - Musculoskeletal pain [None]
  - Myalgia [None]
  - Bone pain [None]
  - Arthralgia [None]
  - Muscle spasms [None]
